FAERS Safety Report 9924763 (Version 3)
Quarter: 2014Q1

REPORT INFORMATION
  Report Type: Report from Study
  Country: CA (occurrence: CA)
  Receive Date: 20140226
  Receipt Date: 20140328
  Transmission Date: 20141002
  Serious: Yes (Other)
  Sender: FDA-Public Use
  Company Number: CA-JNJFOC-20140200042

PATIENT
  Age: 57 Year
  Sex: Female
  Weight: 82.56 kg

DRUGS (1)
  1. REMICADE [Suspect]
     Indication: CROHN^S DISEASE
     Route: 042
     Dates: start: 20071105

REACTIONS (2)
  - Depression [Unknown]
  - Nasopharyngitis [Recovered/Resolved]
